FAERS Safety Report 20033778 (Version 2)
Quarter: 2022Q3

REPORT INFORMATION
  Report Type: Spontaneous
  Country: US (occurrence: US)
  Receive Date: 20211104
  Receipt Date: 20220728
  Transmission Date: 20221027
  Serious: No
  Sender: FDA-Public Use
  Company Number: US-IGSA-BIG0016513

PATIENT
  Age: 64 Year
  Sex: Male

DRUGS (6)
  1. HUMAN IMMUNOGLOBULIN G [Suspect]
     Active Substance: HUMAN IMMUNOGLOBULIN G
     Indication: Hypogammaglobulinaemia
     Dosage: UNK UNK, Q.M.T.
     Route: 042
     Dates: start: 202011, end: 202012
  2. HUMAN IMMUNOGLOBULIN G [Suspect]
     Active Substance: HUMAN IMMUNOGLOBULIN G
     Indication: Pneumonitis
     Dosage: 500 MILLIGRAM/KILOGRAM, QD
     Route: 042
     Dates: start: 2021
  3. PEMBROLIZUMAB [Concomitant]
     Active Substance: PEMBROLIZUMAB
     Indication: Non-small cell lung cancer metastatic
     Dosage: 3 UNK
  4. OXYGEN [Concomitant]
     Active Substance: OXYGEN
     Dosage: 15 LITER
  5. OXYGEN [Concomitant]
     Active Substance: OXYGEN
     Dosage: 3 LITER
     Dates: start: 2021
  6. EMCORT [METHYLPREDNISOLONE] [Concomitant]
     Indication: Respiratory failure
     Dosage: 2 MILLIGRAM/KILOGRAM, QD

REACTIONS (1)
  - Hypersensitivity [Unknown]

NARRATIVE: CASE EVENT DATE: 20200101
